FAERS Safety Report 21142626 (Version 3)
Quarter: 2022Q3

REPORT INFORMATION
  Report Type: Report from Study
  Country: US (occurrence: US)
  Receive Date: 20220728
  Receipt Date: 20220823
  Transmission Date: 20221026
  Serious: Yes (Other)
  Sender: FDA-Public Use
  Company Number: US-BAYER-2022A103067

PATIENT
  Age: 33 Year
  Sex: Male

DRUGS (2)
  1. STIVARGA [Suspect]
     Active Substance: REGORAFENIB
     Indication: Colon cancer
     Dosage: 80 MG, QD
     Route: 048
     Dates: start: 20220628
  2. STIVARGA [Suspect]
     Active Substance: REGORAFENIB
     Indication: Colorectal cancer
     Dosage: 80 MG, BID
     Route: 048
     Dates: start: 202207, end: 20220803

REACTIONS (10)
  - Brain neoplasm [Not Recovered/Not Resolved]
  - Rhinovirus infection [Unknown]
  - Cough [Unknown]
  - Emergency care [Unknown]
  - Pyrexia [Unknown]
  - Hypoaesthesia [Recovering/Resolving]
  - Off label use [None]
  - Rash [Recovering/Resolving]
  - Limb discomfort [Recovering/Resolving]
  - Balance disorder [Recovering/Resolving]

NARRATIVE: CASE EVENT DATE: 20220628
